FAERS Safety Report 15638828 (Version 1)
Quarter: 2018Q4

REPORT INFORMATION
  Report Type: Spontaneous
  Country: US (occurrence: US)
  Receive Date: 20181120
  Receipt Date: 20181120
  Transmission Date: 20190205
  Serious: No
  Sender: FDA-Public Use
  Company Number: US-PERRIGO-18US005101

PATIENT
  Sex: Female

DRUGS (4)
  1. POLYETHYLENE GLYCOL 3350. [Suspect]
     Active Substance: POLYETHYLENE GLYCOL 3350
     Indication: CONSTIPATION
     Dosage: 17 G, QD PRN
     Route: 048
     Dates: start: 2013
  2. POLYETHYLENE GLYCOL 3350. [Suspect]
     Active Substance: POLYETHYLENE GLYCOL 3350
     Dosage: 17 G, ADDITIONAL DOSE OF 8.5 G
     Route: 048
     Dates: start: 20180507, end: 20180507
  3. ANALGESICS [Concomitant]
     Active Substance: UNSPECIFIED INGREDIENT
     Indication: FRACTURE
     Dosage: UNK
     Route: 065
  4. ANALGESICS [Concomitant]
     Active Substance: UNSPECIFIED INGREDIENT
     Indication: ARTHRITIS

REACTIONS (2)
  - Drug effect decreased [Unknown]
  - Extra dose administered [Recovered/Resolved]

NARRATIVE: CASE EVENT DATE: 20180507
